FAERS Safety Report 6110654-X (Version None)
Quarter: 2009Q1

REPORT INFORMATION
  Report Type: 
  Country: None (occurrence: None)
  Receive Date: 20090310
  Receipt Date: 20090223
  Transmission Date: 20090719
  Serious: Yes (Other)
  Sender: FDA-Public Use
  Company Number: GB-GENENTECH-267672

PATIENT
  Sex: Male
  Weight: 69 kg

DRUGS (1)
  1. XOLAIR [Suspect]
     Indication: ASTHMA
     Dosage: 150 MG, UNK
     Dates: start: 20080417, end: 20080703

REACTIONS (2)
  - HAEMOPHILUS INFECTION [None]
  - STAPHYLOCOCCAL INFECTION [None]
